FAERS Safety Report 8847048 (Version 2)
Quarter: 2013Q3

REPORT INFORMATION
  Report Type: Spontaneous
  Country: JP (occurrence: JP)
  Receive Date: 20121018
  Receipt Date: 20130920
  Transmission Date: 20140515
  Serious: Yes (Other)
  Sender: FDA-Public Use
  Company Number: JP-SANOFI-AVENTIS-2012SA075972

PATIENT
  Age: 70 Year
  Sex: Male
  Weight: 68 kg

DRUGS (9)
  1. ELPLAT [Suspect]
     Indication: COLON CANCER
     Dosage: INJECTION,REGIMEN #1
     Route: 041
     Dates: start: 20100607, end: 20100607
  2. ELPLAT [Suspect]
     Indication: COLON CANCER
     Dosage: INJECTION , REGIMEN #2
     Route: 041
     Dates: start: 20100630, end: 20100630
  3. ELPLAT [Suspect]
     Indication: COLON CANCER
     Dosage: INJECTION, REGIMEN#3
     Route: 041
     Dates: start: 20100811, end: 20100811
  4. XELODA [Suspect]
     Indication: COLON CANCER
     Route: 048
     Dates: start: 20100607, end: 20130621
  5. XELODA [Suspect]
     Indication: COLON CANCER
     Route: 048
     Dates: start: 20100630, end: 20100714
  6. XELODA [Suspect]
     Indication: COLON CANCER
     Route: 048
     Dates: start: 20100811, end: 20100825
  7. AVASTIN [Suspect]
     Indication: COLON CANCER
     Route: 041
     Dates: start: 20100607, end: 20100607
  8. AVASTIN [Suspect]
     Indication: COLON CANCER
     Route: 041
     Dates: start: 20100630, end: 20100630
  9. AVASTIN [Suspect]
     Indication: COLON CANCER
     Route: 041
     Dates: start: 20100811, end: 20100811

REACTIONS (3)
  - Thrombocytopenia [Recovering/Resolving]
  - Splenomegaly [Recovering/Resolving]
  - White blood cell count decreased [Unknown]
